FAERS Safety Report 15232884 (Version 1)
Quarter: 2018Q4

REPORT INFORMATION
  Report Type: Spontaneous
  Country: PL (occurrence: PL)
  Receive Date: 20180802
  Receipt Date: 20180802
  Transmission Date: 20190204
  Serious: Yes (Hospitalization)
  Sender: FDA-Public Use
  Company Number: PL-TEVA-2018-PL-933464

PATIENT
  Age: 17 Year
  Sex: Female
  Weight: 58 kg

DRUGS (5)
  1. FLUOXETINE [Concomitant]
     Active Substance: FLUOXETINE HYDROCHLORIDE
     Indication: DEPRESSION
     Dosage: UP TO 40 MG
     Route: 048
     Dates: start: 20171229
  2. TRITTICO CR [Concomitant]
     Active Substance: TRAZODONE HYDROCHLORIDE
     Indication: SLEEP DISORDER
     Route: 048
     Dates: start: 20180102, end: 20180112
  3. CHLORPROTHIXEN [Concomitant]
     Active Substance: CHLORPROTHIXENE HYDROCHLORIDE
     Indication: SLEEP DISORDER
     Route: 048
     Dates: start: 20180112
  4. NOOTROPIL [Concomitant]
     Active Substance: PIRACETAM
     Indication: PSYCHOGENIC SEIZURE
     Route: 048
     Dates: start: 201709
  5. FINLEPSIN 200 RETARD, 200 MG, TABLETKI O PRZEDLUZONYM UWALNIANIU [Suspect]
     Active Substance: CARBAMAZEPINE
     Indication: DEPRESSION
     Route: 048
     Dates: start: 20180104, end: 20180117

REACTIONS (3)
  - Thrombocytopenia [Recovering/Resolving]
  - Leukopenia [Recovering/Resolving]
  - Neutropenia [Recovering/Resolving]

NARRATIVE: CASE EVENT DATE: 20180117
